FAERS Safety Report 16907470 (Version 1)
Quarter: 2019Q4

REPORT INFORMATION
  Report Type: Spontaneous
  Country: FR (occurrence: FR)
  Receive Date: 20191011
  Receipt Date: 20191011
  Transmission Date: 20200122
  Serious: Yes (Hospitalization)
  Sender: FDA-Public Use
  Company Number: FR-ACCORD-157115

PATIENT
  Age: 62 Year
  Sex: Male

DRUGS (12)
  1. DEROXAT [Concomitant]
     Active Substance: PAROXETINE HYDROCHLORIDE
     Route: 048
  2. TRANXENE [Concomitant]
     Active Substance: CLORAZEPATE DIPOTASSIUM
     Route: 048
  3. SOLUPRED (PREDNISOLONE) [Concomitant]
     Active Substance: PREDNISOLONE
     Dosage: (STRENGTH-20 MG)
     Dates: start: 20190424, end: 20190430
  4. JAMYLENE [Concomitant]
     Active Substance: DOCUSATE SODIUM
     Dosage: (STRENGTH-50 MG)
  5. ZOPHREN [Concomitant]
     Active Substance: ONDANSETRON
     Dosage: (STRENGTH-8 MG)
     Dates: start: 20190424, end: 20190429
  6. BISOCE [Concomitant]
     Active Substance: BISOPROLOL
     Dosage: FILM-COATED SCORED TABLETS (STRENGTH-2.5 MG)
  7. IMOVANE [Concomitant]
     Active Substance: ZOPICLONE
     Route: 048
  8. ETOPOSIDE. [Suspect]
     Active Substance: ETOPOSIDE
     Indication: LUNG ADENOCARCINOMA
     Route: 042
     Dates: start: 20190424, end: 20190426
  9. CISPLATIN. [Suspect]
     Active Substance: CISPLATIN
     Indication: LUNG ADENOCARCINOMA
     Route: 042
     Dates: start: 20190424, end: 20190426
  10. APREPITANT. [Concomitant]
     Active Substance: APREPITANT
     Route: 048
     Dates: start: 20190424, end: 20190428
  11. FLUCONAZOLE. [Interacting]
     Active Substance: FLUCONAZOLE
     Indication: OESOPHAGEAL CANDIDIASIS
     Route: 048
     Dates: start: 20190426, end: 20190517
  12. MODECATE [Concomitant]
     Active Substance: FLUPHENAZINE DECANOATE

REACTIONS (1)
  - Pancytopenia [Recovered/Resolved]

NARRATIVE: CASE EVENT DATE: 20190504
